FAERS Safety Report 5592546-8 (Version None)
Quarter: 2007Q4

REPORT INFORMATION
  Report Type: 
  Country: None (occurrence: None)
  Receive Date: 20071217
  Receipt Date: 20071109
  Transmission Date: 20080405
  Serious: No
  Sender: FDA-Public Use
  Company Number: BDI-010568

PATIENT
  Age: 62 Year
  Sex: Female

DRUGS (1)
  1. MULTIHANCE [Suspect]
     Indication: SCAN WITH CONTRAST
     Dosage: SY
     Dates: start: 20070925, end: 20070925

REACTIONS (1)
  - URTICARIA [None]
